FAERS Safety Report 25995202 (Version 1)
Quarter: 2025Q4

REPORT INFORMATION
  Report Type: Spontaneous
  Country: US (occurrence: None)
  Receive Date: 20251103
  Receipt Date: 20251103
  Transmission Date: 20260117
  Serious: Yes (Death, Hospitalization)
  Sender: FDA-CTU
  Company Number: None

PATIENT
  Age: 86 Year
  Sex: Female
  Weight: 74.25 kg

DRUGS (2)
  1. KISQALI [Suspect]
     Active Substance: RIBOCICLIB SUCCINATE
     Indication: Hormone receptor positive breast cancer
     Dates: start: 20250601, end: 20250818
  2. KISQALI [Suspect]
     Active Substance: RIBOCICLIB SUCCINATE
     Indication: HER2 positive breast cancer

REACTIONS (4)
  - Asthenia [None]
  - Dyspnoea [None]
  - Pneumonia [None]
  - Pneumonia fungal [None]

NARRATIVE: CASE EVENT DATE: 20250815
